FAERS Safety Report 4663839-3 (Version None)
Quarter: 2005Q2

REPORT INFORMATION
  Report Type: 
  Country: None (occurrence: None)
  Receive Date: 20050516
  Receipt Date: 20050502
  Transmission Date: 20051028
  Serious: Yes (Death, Hospitalization)
  Sender: FDA-Public Use
  Company Number: 2001057100GB

PATIENT
  Age: 94 Year
  Sex: Female

DRUGS (5)
  1. PREDNISOLONE [Suspect]
     Indication: ARTHRALGIA
     Dosage: 5 MG (5 MG, 1 IN 1 D), ORAL
     Route: 048
     Dates: start: 19940101, end: 20010318
  2. PREDNISOLONE [Suspect]
     Indication: ARTHRITIS
     Dosage: 5 MG (5 MG, 1 IN 1 D), ORAL
     Route: 048
     Dates: start: 19940101, end: 20010318
  3. IBUPROFEN [Suspect]
     Indication: ARTHRALGIA
     Dosage: 400 MG (200 MG, 2 IN 1 D), ORAL
     Route: 048
     Dates: start: 19970101, end: 20010318
  4. CODEINE PHOSPHATE (CODEINE PHOSPHATE) [Concomitant]
  5. ACETAMINOPHEN [Concomitant]

REACTIONS (3)
  - DIVERTICULUM [None]
  - DUODENAL ULCER PERFORATION [None]
  - PERITONITIS [None]
